FAERS Safety Report 9569679 (Version 2)
Quarter: 2013Q3

REPORT INFORMATION
  Report Type: Spontaneous
  Country: US (occurrence: US)
  Receive Date: 20130930
  Receipt Date: 20130930
  Transmission Date: 20140515
  Serious: No
  Sender: FDA-Public Use
  Company Number: US-AMGEN-USASP2013007979

PATIENT
  Age: 50 Year
  Sex: Female

DRUGS (2)
  1. ENBREL [Suspect]
     Indication: PSORIASIS
     Dosage: 50 MG, Q2WK
     Route: 065
     Dates: start: 20120920
  2. ENBREL [Suspect]
     Dosage: UNK
     Route: 065

REACTIONS (11)
  - Productive cough [Recovered/Resolved]
  - Sinus congestion [Recovered/Resolved]
  - Dizziness [Recovered/Resolved]
  - Headache [Recovered/Resolved]
  - Nasal congestion [Recovered/Resolved]
  - Ear discomfort [Recovered/Resolved]
  - Ear pain [Recovered/Resolved]
  - Middle ear effusion [Recovered/Resolved]
  - Influenza [Recovered/Resolved]
  - Psoriasis [Recovered/Resolved]
  - Sinusitis [Recovered/Resolved]
